FAERS Safety Report 11854341 (Version 1)
Quarter: 2015Q4

REPORT INFORMATION
  Report Type: Spontaneous
  Country: US (occurrence: US)
  Receive Date: 20151221
  Receipt Date: 20151221
  Transmission Date: 20160305
  Serious: Yes (Other)
  Sender: FDA-Public Use
  Company Number: US-HOSPIRA-3111163

PATIENT
  Age: 82 Year
  Sex: Female

DRUGS (2)
  1. HEPARIN SODIUM. [Suspect]
     Active Substance: HEPARIN SODIUM
     Indication: CATHETERISATION CARDIAC
     Dosage: RATE OF 900 UNITS/H (100 UNITS/ML)
     Route: 041
     Dates: start: 20151204, end: 20151204
  2. HEPARIN SODIUM. [Suspect]
     Active Substance: HEPARIN SODIUM
     Indication: POSTOPERATIVE CARE
     Dosage: RATE OF 900 UNITS/H (100 UNITS/ML)
     Route: 041
     Dates: start: 20151204, end: 20151204

REACTIONS (3)
  - Incorrect dose administered by device [Recovered/Resolved]
  - Activated partial thromboplastin time prolonged [Recovered/Resolved]
  - Drug level increased [Recovered/Resolved]

NARRATIVE: CASE EVENT DATE: 20151204
